FAERS Safety Report 17423396 (Version 1)
Quarter: 2020Q1

REPORT INFORMATION
  Report Type: Spontaneous
  Country: JP (occurrence: JP)
  Receive Date: 20200217
  Receipt Date: 20200217
  Transmission Date: 20200409
  Serious: Yes (Disabling, Other)
  Sender: FDA-Public Use
  Company Number: JP-AMGEN-JPNNI2019212209

PATIENT
  Age: 83 Year
  Sex: Female

DRUGS (21)
  1. COVERSYL [Concomitant]
     Active Substance: PERINDOPRIL
     Dosage: 4 MILLIGRAM, QD
     Route: 048
     Dates: start: 20110421
  2. REBAMIPIDE [Concomitant]
     Active Substance: REBAMIPIDE
     Dosage: 100 MG, TID
     Route: 048
     Dates: start: 20110421
  3. METHYCOBAL [Concomitant]
     Active Substance: METHYLCOBALAMIN
     Dosage: 500 UG, TID
     Route: 048
     Dates: start: 20110421
  4. AMLODIPINE [Concomitant]
     Active Substance: AMLODIPINE BESYLATE
     Dosage: 5 MILLIGRAM, QD
     Route: 048
     Dates: start: 20110421
  5. LYRICA [Concomitant]
     Active Substance: PREGABALIN
     Dosage: 75 MG, BID
     Route: 048
     Dates: start: 20170105
  6. LIVALO [Concomitant]
     Active Substance: PITAVASTATIN CALCIUM
     Dosage: 1 MG, QD
     Route: 048
     Dates: start: 20110421
  7. ADETPHOS [Concomitant]
     Active Substance: ADENOSINE TRIPHOSPHATE
     Dosage: 20 MG, TID
     Route: 048
     Dates: start: 20110421
  8. TAKEPRON [Concomitant]
     Active Substance: LANSOPRAZOLE
     Dosage: 15 MG, QD
     Route: 048
     Dates: start: 20110421
  9. NEUROTROPIN [Concomitant]
     Active Substance: NEUROTROPIN
     Dosage: 3 MILLILITER, QD
     Route: 042
  10. BIO-THREE [Concomitant]
     Active Substance: HERBALS
     Dosage: 1 DF, TID
     Route: 048
     Dates: start: 20110421
  11. OPALMON [Concomitant]
     Active Substance: LIMAPROST
     Dosage: 5 UG, TID
     Route: 048
     Dates: start: 20150820
  12. MAGNESIUM OXIDE. [Concomitant]
     Active Substance: MAGNESIUM OXIDE
     Dosage: 0.5 G, TID
     Route: 048
     Dates: start: 20110421
  13. TANKARU [Concomitant]
     Dosage: 1000 MG, QD
     Route: 048
     Dates: start: 20150423
  14. PRALIA [Suspect]
     Active Substance: DENOSUMAB
     Indication: OSTEOPOROSIS
     Dosage: 60 MILLIGRAM
     Route: 065
     Dates: start: 20150430, end: 20190620
  15. KREMEZIN [Concomitant]
     Active Substance: ACTIVATED CHARCOAL
     Dosage: 2000 MG, TID
     Route: 048
     Dates: start: 20110421
  16. SUMILU STICK [Concomitant]
     Dosage: UNK
     Dates: start: 20180809
  17. KASHIWADOL [Concomitant]
     Active Substance: SODIUM CHONDROITIN SULFATE
     Dosage: 20 ML, QD
     Route: 042
  18. ALFAROL [Concomitant]
     Active Substance: ALFACALCIDOL
     Dosage: 0.5 UG, QD
     Route: 048
     Dates: start: 20110421
  19. PANTETHINE [Concomitant]
     Active Substance: PANTETHINE
     Dosage: 0.5 G, TID
     Route: 048
     Dates: start: 20110421
  20. LOXONIN [Concomitant]
     Active Substance: LOXOPROFEN SODIUM
     Dosage: 100 MG, QD
     Route: 050
     Dates: start: 20180712
  21. PALUX [Concomitant]
     Active Substance: ALPROSTADIL
     Dosage: 2 MILLILITER, QD
     Route: 042

REACTIONS (1)
  - Osteomyelitis [Not Recovered/Not Resolved]

NARRATIVE: CASE EVENT DATE: 20190702
